FAERS Safety Report 4425030-5 (Version None)
Quarter: 2004Q3

REPORT INFORMATION
  Report Type: 
  Country: None (occurrence: None)
  Receive Date: 20040813
  Receipt Date: 20040726
  Transmission Date: 20050211
  Serious: Yes (Death)
  Sender: FDA-Public Use
  Company Number: 200417311GDDC

PATIENT
  Age: 75 Year
  Sex: Male
  Weight: 89 kg

DRUGS (4)
  1. LANTUS [Suspect]
     Indication: DIABETES MELLITUS
     Dates: start: 20040428
  2. METFORMIN HCL [Concomitant]
     Route: 048
     Dates: start: 20020901
  3. SIMVASTATIN [Concomitant]
     Route: 048
     Dates: start: 20011201
  4. RAMIPRIL [Concomitant]
     Route: 048
     Dates: start: 20021001

REACTIONS (1)
  - HEPATIC FAILURE [None]
